FAERS Safety Report 5515161-0 (Version None)
Quarter: 2007Q4

REPORT INFORMATION
  Report Type: 
  Country: None (occurrence: None)
  Receive Date: 20071113
  Receipt Date: 20070124
  Transmission Date: 20080405
  Serious: No
  Sender: FDA-Public Use
  Company Number: A0636858A

PATIENT
  Age: 80 Year
  Sex: Male

DRUGS (5)
  1. COREG [Suspect]
     Dosage: 3.125MG TWICE PER DAY
     Route: 048
     Dates: start: 20050801
  2. POTASSIUM CHLORIDE [Concomitant]
  3. FUROSEMIDE [Concomitant]
  4. TAMOL [Concomitant]
  5. POLYCARBOPHIL [Concomitant]

REACTIONS (4)
  - DIZZINESS [None]
  - DYSPNOEA EXERTIONAL [None]
  - HEADACHE [None]
  - NERVOUSNESS [None]
